FAERS Safety Report 7057206-5 (Version None)
Quarter: 2010Q4

REPORT INFORMATION
  Report Type: 
  Country: None (occurrence: None)
  Receive Date: 20101021
  Receipt Date: 20101021
  Transmission Date: 20110411
  Serious: Yes (Hospitalization)
  Sender: FDA-Public Use
  Company Number: None

PATIENT
  Sex: Female
  Weight: 58 kg

DRUGS (4)
  1. BEVACIZUMAB (RHUMAB VEGF) [Suspect]
     Dosage: 289 MG
     Dates: end: 20100929
  2. CAMPTOSAR [Suspect]
     Dosage: 300 MG
     Dates: end: 20100929
  3. LEUCOVORIN CALCIUM [Suspect]
     Dosage: 700 MG
     Dates: end: 20100929
  4. FLUOROURACIL [Suspect]
     Dosage: 4732 MG
     Dates: end: 20101029

REACTIONS (3)
  - ABDOMINAL PAIN [None]
  - ABSCESS [None]
  - GASTROINTESTINAL PERFORATION [None]
